FAERS Safety Report 16486889 (Version 4)
Quarter: 2021Q3

REPORT INFORMATION
  Report Type: Spontaneous
  Country: US (occurrence: US)
  Receive Date: 20190627
  Receipt Date: 20210706
  Transmission Date: 20211014
  Serious: No
  Sender: FDA-Public Use
  Company Number: US-PFIZER INC-2016192734

PATIENT
  Age: 72 Year
  Sex: Male

DRUGS (10)
  1. ONDANSETRON [Concomitant]
     Active Substance: ONDANSETRON
     Indication: ABDOMINAL DISCOMFORT
     Dosage: 8 MG, UNK (BEFORE MEAL)
     Dates: start: 201511
  2. CALCIUM 600+VITAMIN D3 400 [Concomitant]
     Indication: GASTRIC DISORDER
     Dosage: UNK, TWO TIMES A DAY (NOON, SUPPER)
     Dates: start: 201507
  3. LYRICA [Suspect]
     Active Substance: PREGABALIN
     Dosage: 50 MG, TWO TIMES A DAY
     Route: 048
     Dates: start: 20160328
  4. LYRICA [Suspect]
     Active Substance: PREGABALIN
     Dosage: 75 MG, THREE TIMES A DAY
  5. SIMVASTATIN. [Concomitant]
     Active Substance: SIMVASTATIN
     Indication: BLOOD CHOLESTEROL ABNORMAL
     Dosage: 20 MG, ONE A DAY
  6. AMLODIPINE [Concomitant]
     Active Substance: AMLODIPINE BESYLATE
     Indication: BLOOD PRESSURE ABNORMAL
     Dosage: 2.5 MG, OMCE A DAY
     Dates: start: 201510
  7. PANTOPRAZOLE [Concomitant]
     Active Substance: PANTOPRAZOLE
     Indication: GASTROOESOPHAGEAL REFLUX DISEASE
     Dosage: 40 MG, TWO TIMES A DAY (MORNING, SUPPER)
     Dates: start: 201510
  8. VITAMIN B12 [Concomitant]
     Active Substance: CYANOCOBALAMIN
     Indication: GASTRIC DISORDER
     Dosage: 500 UG, ONCE A DAY
     Dates: start: 201507
  9. GAMUNEX [Concomitant]
     Active Substance: HUMAN IMMUNOGLOBULIN G
     Dosage: UNK
     Route: 042
  10. ONDANSETRON [Concomitant]
     Active Substance: ONDANSETRON
     Indication: VOMITING

REACTIONS (4)
  - Hypoacusis [Unknown]
  - Malaise [Unknown]
  - Neuralgia [Unknown]
  - Memory impairment [Unknown]
